FAERS Safety Report 5342108-2 (Version None)
Quarter: 2007Q2

REPORT INFORMATION
  Report Type: 
  Country: None (occurrence: None)
  Receive Date: 20070416
  Receipt Date: 20070306
  Transmission Date: 20071010
  Serious: No
  Sender: FDA-Public Use
  Company Number: 2007SP000815

PATIENT
  Age: 68 Year
  Sex: Female
  Weight: 56.246 kg

DRUGS (11)
  1. LUNESTA [Suspect]
     Indication: INSOMNIA
     Dosage: 2 MG;HS;ORAL
     Route: 048
     Dates: start: 20070305
  2. CENTRUM SILVER [Concomitant]
  3. CALCIUM CHLORIDE [Concomitant]
  4. OCUVITE [Concomitant]
  5. MICARDIS [Concomitant]
  6. ASPIRIN [Concomitant]
  7. SULAR [Concomitant]
  8. PLAVIX [Concomitant]
  9. ESTROGENS CONJUGATED [Concomitant]
  10. EZETIMIBE [Concomitant]
  11. METOPROLOL SUCCINATE [Concomitant]

REACTIONS (1)
  - INITIAL INSOMNIA [None]
